FAERS Safety Report 5568058-4 (Version None)
Quarter: 2007Q4

REPORT INFORMATION
  Report Type: 
  Country: None (occurrence: None)
  Receive Date: 20071220
  Receipt Date: 20071214
  Transmission Date: 20080405
  Serious: Yes (Hospitalization, Other)
  Sender: FDA-Public Use
  Company Number: US-NOVOPROD-263781

PATIENT

DRUGS (9)
  1. NORDITROPIN NORDIFLEX [Suspect]
     Indication: BODY HEIGHT BELOW NORMAL
     Dosage: 3.8 MG, QD
     Route: 058
     Dates: start: 20070420, end: 20070511
  2. PREDNISONE                         /00044702/ [Concomitant]
     Indication: CUSHING'S SYNDROME
  3. PROGRAF [Concomitant]
     Indication: ILL-DEFINED DISORDER
  4. ZESTRIL [Concomitant]
     Indication: ILL-DEFINED DISORDER
     Dosage: UNK, UNK
  5. PHOSLO [Concomitant]
     Indication: PROPHYLAXIS
  6. ZYRTEC [Concomitant]
     Indication: SEASONAL ALLERGY
  7. ALBUTEROL [Concomitant]
     Indication: ASTHMA
  8. GLUCOPHAGE [Concomitant]
     Indication: INSULIN RESISTANCE
  9. ZETIA [Concomitant]
     Indication: BLOOD CHOLESTEROL INCREASED

REACTIONS (1)
  - MIGRAINE [None]
